FAERS Safety Report 7485516-6 (Version None)
Quarter: 2011Q2

REPORT INFORMATION
  Report Type: 
  Country: None (occurrence: None)
  Receive Date: 20110517
  Receipt Date: 20101223
  Transmission Date: 20111010
  Serious: Yes (Other)
  Sender: FDA-Public Use
  Company Number: US-BAYER-2010-008503

PATIENT
  Age: 30 Year
  Sex: Male

DRUGS (2)
  1. ALEVE (CAPLET) [Suspect]
     Indication: BACK PAIN
     Dosage: 2 DF, UNK
     Route: 048
     Dates: start: 20101223, end: 20101223
  2. ALEVE (CAPLET) [Suspect]
     Dosage: 1 DF, UNK
     Route: 048
     Dates: start: 20101222, end: 20101222

REACTIONS (8)
  - HEART RATE INCREASED [None]
  - URTICARIA [None]
  - SWELLING FACE [None]
  - PHARYNGEAL OEDEMA [None]
  - PRURITUS [None]
  - LIP DISORDER [None]
  - HYPERSENSITIVITY [None]
  - BACK PAIN [None]
